FAERS Safety Report 9054254 (Version 1)
Quarter: 2013Q1

REPORT INFORMATION
  Report Type: Spontaneous
  Country: BR (occurrence: BR)
  Receive Date: 20130208
  Receipt Date: 20130208
  Transmission Date: 20140127
  Serious: Yes (Other)
  Sender: FDA-Public Use
  Company Number: BR-GLAXOSMITHKLINE-A1011291A

PATIENT
  Sex: Male

DRUGS (3)
  1. COMBODART [Suspect]
     Indication: BENIGN PROSTATIC HYPERPLASIA
     Dosage: 1CAP PER DAY
     Route: 065
  2. DOXAZOSIN [Concomitant]
     Dosage: 4MG PER DAY
  3. FINASTERIDE [Concomitant]
     Dosage: 5MG PER DAY

REACTIONS (2)
  - Urinary retention [Unknown]
  - Dysuria [Unknown]
